FAERS Safety Report 9303111 (Version 1)
Quarter: 2013Q2

REPORT INFORMATION
  Report Type: Spontaneous
  Country: SE (occurrence: None)
  Receive Date: 20130516
  Receipt Date: 20130516
  Transmission Date: 20140414
  Serious: Yes (Other)
  Sender: FDA-Public Use
  Company Number: SYM-2013-03736

PATIENT
  Age: 34 Year
  Sex: Male

DRUGS (3)
  1. FLAGYL [Suspect]
     Indication: TOOTH INFECTION
  2. IPREN (IBUPROFEN)(IBUPROFEN) [Concomitant]
  3. ALVEDON (PARACETAMOL)(PARACETAMOL) [Concomitant]

REACTIONS (5)
  - Serum ferritin increased [None]
  - Gamma-glutamyltransferase increased [None]
  - Blood bilirubin increased [None]
  - Jaundice [None]
  - Chromaturia [None]
